FAERS Safety Report 5140139-9 (Version None)
Quarter: 2006Q4

REPORT INFORMATION
  Report Type: 
  Country: None (occurrence: None)
  Receive Date: 20061024
  Receipt Date: 20061005
  Transmission Date: 20070319
  Serious: Yes (Hospitalization)
  Sender: FDA-Public Use
  Company Number: US200609000291

PATIENT
  Age: 43 Year
  Sex: Female
  Weight: 96.1 kg

DRUGS (6)
  1. ZYPREXA [Suspect]
     Indication: DEPRESSION
     Dates: start: 19990101, end: 20050101
  2. ABILIFY [Concomitant]
  3. TEGRETOL [Concomitant]
  4. LITHOBID [Concomitant]
  5. REMERON [Concomitant]
  6. DEPO-PROVERA SUSPENSION/INJ [Concomitant]

REACTIONS (4)
  - DIABETES MELLITUS [None]
  - HYPOGLYCAEMIA [None]
  - LOCALISED INFECTION [None]
  - METABOLIC DISORDER [None]
